FAERS Safety Report 8431917-9 (Version None)
Quarter: 2012Q2

REPORT INFORMATION
  Report Type: 
  Country: None (occurrence: None)
  Receive Date: 20120606
  Receipt Date: 20120523
  Transmission Date: 20120825
  Serious: Yes (Death, Other)
  Sender: FDA-Public Use
  Company Number: 2012P1004756

PATIENT
  Age: 65 Year
  Sex: Male

DRUGS (13)
  1. DIMENHYDRINATE [Concomitant]
  2. PARACETAMOL (ATASOL) [Concomitant]
  3. CODEINE PHOSPHATE [Concomitant]
  4. BACITRACIN [Concomitant]
  5. DOCUSATE SODIUM [Concomitant]
  6. ACETAMINOPHEN [Concomitant]
  7. WARFARIN SODIUM [Suspect]
     Indication: THROMBOSIS PROPHYLAXIS
     Dosage: 2.5 MG; QD, 5 MG; QD
     Dates: start: 20111220, end: 20111224
  8. WARFARIN SODIUM [Suspect]
     Indication: THROMBOSIS PROPHYLAXIS
     Dosage: 2.5 MG; QD, 5 MG; QD
     Dates: start: 20111220, end: 20111224
  9. FRAGMIN [Suspect]
     Indication: THROMBOSIS PROPHYLAXIS
     Dosage: 5,000 IU; QD; SC
     Route: 058
     Dates: start: 20111220, end: 20111224
  10. FERROUS FUMARATE [Concomitant]
  11. CAFFEINE CITRATE [Concomitant]
  12. CEFAZOLIN [Concomitant]
  13. MORPHINE [Concomitant]

REACTIONS (3)
  - INTERNATIONAL NORMALISED RATIO DECREASED [None]
  - PULMONARY EMBOLISM [None]
  - TREATMENT FAILURE [None]
